FAERS Safety Report 15578713 (Version 7)
Quarter: 2020Q3

REPORT INFORMATION
  Report Type: Report from Study
  Country: US (occurrence: US)
  Receive Date: 20181102
  Receipt Date: 20200710
  Transmission Date: 20201102
  Serious: Yes (Life-Threatening, Hospitalization)
  Sender: FDA-Public Use
  Company Number: US-ROCHE-1491900

PATIENT
  Age: 47 Year
  Sex: Male
  Weight: 102.5 kg

DRUGS (195)
  1. PLACEBO [Suspect]
     Active Substance: UNSPECIFIED INGREDIENT
     Indication: PRIMARY PROGRESSIVE MULTIPLE SCLEROSIS
     Dosage: DAYS 1 AND 15 OF EACH 24?WEEK CYCLE (AS PER PROTOCOL).?INFUSION INTERRUPTED FOR 10 MINUTES DUE TO TH
     Route: 042
     Dates: start: 20121227, end: 20121227
  2. ACETAMINOPHEN. [Concomitant]
     Active Substance: ACETAMINOPHEN
     Indication: PAIN
     Route: 065
     Dates: start: 201611, end: 201611
  3. TYLENOL [Concomitant]
     Active Substance: ACETAMINOPHEN
     Indication: PREMEDICATION
     Route: 048
     Dates: start: 20130110
  4. TYLENOL [Concomitant]
     Active Substance: ACETAMINOPHEN
     Route: 065
     Dates: start: 20130611
  5. TYLENOL [Concomitant]
     Active Substance: ACETAMINOPHEN
     Route: 065
     Dates: start: 20140527
  6. BACLOFEN. [Concomitant]
     Active Substance: BACLOFEN
     Route: 065
     Dates: start: 20140825
  7. FAMOTIDINE. [Concomitant]
     Active Substance: FAMOTIDINE
     Route: 065
     Dates: start: 20181025
  8. HYDROCHLOROTHIAZIDE. [Concomitant]
     Active Substance: HYDROCHLOROTHIAZIDE
     Indication: OEDEMA PERIPHERAL
     Dosage: INDICATION: EDEMA IN RIGHT LEG
     Route: 065
     Dates: start: 20130427
  9. MORPHINE [Concomitant]
     Active Substance: MORPHINE
     Route: 065
     Dates: start: 20160208, end: 20160211
  10. MORPHINE [Concomitant]
     Active Substance: MORPHINE
     Route: 065
     Dates: start: 20161021, end: 20161021
  11. OMEPRAZOLE. [Concomitant]
     Active Substance: OMEPRAZOLE
     Indication: NAUSEA
     Route: 065
     Dates: start: 20130708, end: 201507
  12. OXYCODONE [Concomitant]
     Active Substance: OXYCODONE
     Indication: MULTIPLE SCLEROSIS
     Route: 065
     Dates: start: 20130629, end: 201410
  13. OXYCODONE [Concomitant]
     Active Substance: OXYCODONE
     Indication: PAIN
  14. PRILOSEC [Concomitant]
     Active Substance: OMEPRAZOLE MAGNESIUM
     Indication: VOMITING
     Route: 065
     Dates: start: 20130419, end: 20130421
  15. AMBIEN [Concomitant]
     Active Substance: ZOLPIDEM TARTRATE
     Indication: SLEEP APNOEA SYNDROME
     Route: 065
     Dates: start: 20131122
  16. BACITRACIN. [Concomitant]
     Active Substance: BACITRACIN
     Route: 065
     Dates: start: 20180221, end: 201802
  17. HEPARIN [Concomitant]
     Active Substance: HEPARIN SODIUM
     Indication: PNEUMONIA
     Route: 065
     Dates: start: 20160201, end: 20160211
  18. NIACIN. [Concomitant]
     Active Substance: NIACIN
     Indication: HYPERLIPIDAEMIA
     Route: 065
     Dates: start: 20171220, end: 20181018
  19. SENNA [Concomitant]
     Active Substance: SENNA LEAF\SENNOSIDES\SENNOSIDES A AND B
     Route: 065
     Dates: start: 20141016, end: 201507
  20. ROCURONIUM [Concomitant]
     Active Substance: ROCURONIUM BROMIDE
     Dosage: BACLOFEN PUMP PLACEMENT
     Route: 065
     Dates: start: 20160129, end: 20160129
  21. XYLOCAINE [Concomitant]
     Active Substance: LIDOCAINE HYDROCHLORIDE
     Indication: VOMITING
  22. MERREM [Concomitant]
     Active Substance: MEROPENEM
     Route: 042
     Dates: end: 20181020
  23. HEPARIN [Concomitant]
     Active Substance: HEPARIN SODIUM
     Route: 058
     Dates: end: 20181021
  24. PITRESSIN [Concomitant]
     Active Substance: VASOPRESSIN
     Dosage: 2.4 UNITS/HOUR
     Route: 042
     Dates: end: 20181020
  25. MAGNESIUM SULFATE. [Concomitant]
     Active Substance: MAGNESIUM SULFATE
     Route: 042
     Dates: start: 20181020
  26. OCRELIZUMAB. [Suspect]
     Active Substance: OCRELIZUMAB
     Dosage: 24/AUG/2017, 08/FEB/2018, 19/JUL/2018
     Route: 042
  27. METHYLPREDNISOLONE. [Concomitant]
     Active Substance: METHYLPREDNISOLONE
     Indication: PREMEDICATION
     Route: 065
     Dates: start: 20121227
  28. TYLENOL [Concomitant]
     Active Substance: ACETAMINOPHEN
     Route: 065
     Dates: start: 20130628
  29. TYLENOL [Concomitant]
     Active Substance: ACETAMINOPHEN
     Route: 065
     Dates: start: 20131216
  30. BACLOFEN. [Concomitant]
     Active Substance: BACLOFEN
     Route: 065
     Dates: start: 20140825, end: 201410
  31. FUROSEMIDE. [Concomitant]
     Active Substance: FUROSEMIDE
     Indication: OEDEMA PERIPHERAL
     Route: 065
     Dates: start: 20130612, end: 201410
  32. GABAPENTIN. [Concomitant]
     Active Substance: GABAPENTIN
     Route: 065
     Dates: start: 20160203, end: 20181018
  33. GABAPENTIN. [Concomitant]
     Active Substance: GABAPENTIN
     Route: 065
     Dates: start: 20181025
  34. PEPCID [Concomitant]
     Active Substance: FAMOTIDINE
     Indication: NAUSEA
     Route: 065
     Dates: start: 20130913, end: 20130913
  35. SERTRALINE [Concomitant]
     Active Substance: SERTRALINE HYDROCHLORIDE
     Indication: DEPRESSION
     Route: 065
     Dates: start: 2009, end: 20150730
  36. WELLBUTRIN [Concomitant]
     Active Substance: BUPROPION HYDROCHLORIDE
     Indication: DEPRESSION
     Route: 065
     Dates: start: 20140812, end: 201606
  37. ZOFRAN [Concomitant]
     Active Substance: ONDANSETRON HYDROCHLORIDE
     Indication: VOMITING
     Route: 065
     Dates: start: 20160304, end: 20160304
  38. BOTOX [Concomitant]
     Active Substance: ONABOTULINUMTOXINA
     Route: 065
     Dates: start: 20170518, end: 20170518
  39. COLACE [Concomitant]
     Active Substance: DOCUSATE SODIUM
     Route: 065
     Dates: start: 20160202, end: 20180211
  40. PROCHLORPERAZINE. [Concomitant]
     Active Substance: PROCHLORPERAZINE
     Indication: NAUSEA
     Route: 065
     Dates: start: 20160129, end: 20160211
  41. ZOSYN [Concomitant]
     Active Substance: PIPERACILLIN SODIUM\TAZOBACTAM SODIUM
     Indication: BACTERIAL INFECTION
  42. INFLUENZA VACCINE [Concomitant]
     Active Substance: INFLUENZA VIRUS VACCINE
     Dosage: ONCE FOR 6 MONTHS
     Route: 030
  43. PLACEBO [Suspect]
     Active Substance: UNSPECIFIED INGREDIENT
     Route: 042
     Dates: start: 20140513, end: 20140513
  44. PLACEBO [Suspect]
     Active Substance: UNSPECIFIED INGREDIENT
     Route: 042
     Dates: start: 20140527, end: 20140527
  45. METHYLPREDNISOLONE. [Concomitant]
     Active Substance: METHYLPREDNISOLONE
     Route: 065
     Dates: start: 20130110
  46. METHYLPREDNISOLONE. [Concomitant]
     Active Substance: METHYLPREDNISOLONE
     Dosage: INDICATION : HOSPITALISATION DUE TO MS WORSENING
     Route: 065
     Dates: start: 20131115, end: 20131119
  47. METHYLPREDNISOLONE. [Concomitant]
     Active Substance: METHYLPREDNISOLONE
     Dosage: 23/MAR/2016, 24/AUG/2016, 16/FEB/2017, 08/FEB/2018, 08/MAR/2016,19/JUL/2018
     Route: 065
  48. TYLENOL [Concomitant]
     Active Substance: ACETAMINOPHEN
     Route: 065
     Dates: start: 20131202
  49. ASPIRIN [ACETYLSALICYLIC ACID] [Concomitant]
     Active Substance: ASPIRIN
     Route: 065
     Dates: start: 20181025
  50. ATENOLOL. [Concomitant]
     Active Substance: ATENOLOL
     Indication: HYPERTENSION
     Route: 065
     Dates: start: 2007, end: 201507
  51. GABAPENTIN. [Concomitant]
     Active Substance: GABAPENTIN
     Route: 048
     Dates: end: 20181021
  52. SERTRALINE [Concomitant]
     Active Substance: SERTRALINE HYDROCHLORIDE
     Route: 065
     Dates: start: 201507, end: 201608
  53. TIZANIDINE. [Concomitant]
     Active Substance: TIZANIDINE
     Indication: MUSCLE SPASTICITY
     Route: 065
     Dates: start: 201312, end: 201410
  54. VITAMIN D2 [Concomitant]
     Active Substance: ERGOCALCIFEROL
     Route: 065
     Dates: start: 201402, end: 201507
  55. DIPHENHYDRAMINE. [Concomitant]
     Active Substance: DIPHENHYDRAMINE
     Route: 065
     Dates: start: 20130110
  56. CEPHALEXIN [CEFALEXIN] [Concomitant]
     Active Substance: CEPHALEXIN
     Indication: DECUBITUS ULCER
     Route: 065
     Dates: start: 201702, end: 201703
  57. COLACE [Concomitant]
     Active Substance: DOCUSATE SODIUM
     Indication: ILEUS
     Dosage: INDICATION: CONSTIPATION
     Route: 065
     Dates: start: 20131123, end: 20131212
  58. DILAUDID [Concomitant]
     Active Substance: HYDROMORPHONE HYDROCHLORIDE
     Indication: HEADACHE
     Route: 065
     Dates: start: 20141004, end: 20141016
  59. DILAUDID [Concomitant]
     Active Substance: HYDROMORPHONE HYDROCHLORIDE
     Dosage: PROPHYLAXIS TO BACLOFEN PUMP PLACEMENT
     Route: 065
     Dates: start: 20160129, end: 20160211
  60. BISACODYL. [Concomitant]
     Active Substance: BISACODYL
     Indication: CONSTIPATION
     Route: 065
     Dates: start: 20160129, end: 20160211
  61. HEPARIN [Concomitant]
     Active Substance: HEPARIN SODIUM
     Route: 065
     Dates: start: 20140930, end: 20141016
  62. LIDOCAINE. [Concomitant]
     Active Substance: LIDOCAINE
     Route: 065
     Dates: start: 20181020, end: 20181023
  63. NEOSTIGMINE. [Concomitant]
     Active Substance: NEOSTIGMINE METHYLSULFATE
     Dosage: BACLOFEN PUMP PLACEMENT
     Route: 065
     Dates: start: 20160129, end: 20160129
  64. PEPCID [Concomitant]
     Active Substance: FAMOTIDINE
     Indication: NAUSEA
     Route: 065
     Dates: start: 20160304
  65. PHENYLEPHRINE [Concomitant]
     Active Substance: PHENYLEPHRINE HYDROCHLORIDE
     Dosage: BACLOFEN PUMP PLACEMENT
     Route: 065
     Dates: start: 20160129, end: 20160129
  66. SENNA [Concomitant]
     Active Substance: SENNA LEAF\SENNOSIDES\SENNOSIDES A AND B
     Indication: CONSTIPATION
     Dosage: EVERY EVENING
     Route: 065
  67. SODIUM CHLORIDE. [Concomitant]
     Active Substance: SODIUM CHLORIDE
     Indication: ACUTE KIDNEY INJURY
     Route: 065
     Dates: start: 20141004, end: 20141004
  68. VANCOCIN [Concomitant]
     Active Substance: VANCOMYCIN HYDROCHLORIDE
     Route: 042
     Dates: start: 20181021, end: 20181021
  69. VANCOMYCIN [Concomitant]
     Active Substance: VANCOMYCIN
     Dosage: BACLOFEN PUMP PLACEMENT
     Route: 065
     Dates: start: 20160129, end: 20160129
  70. HEPARIN [Concomitant]
     Active Substance: HEPARIN SODIUM
     Indication: PNEUMONIA
     Route: 058
     Dates: start: 20140930, end: 20141016
  71. ALBUMIN HUMAN [Concomitant]
     Active Substance: ALBUMIN HUMAN
     Route: 042
     Dates: start: 20181020
  72. ACETAMINOPHEN. [Concomitant]
     Active Substance: ACETAMINOPHEN
     Indication: PREMEDICATION
     Dosage: INDICATION: PREMEDICATION
     Route: 065
     Dates: start: 20121227
  73. METHYLPREDNISOLONE. [Concomitant]
     Active Substance: METHYLPREDNISOLONE
     Route: 065
     Dates: start: 20131216
  74. BACLOFEN. [Concomitant]
     Active Substance: BACLOFEN
     Indication: MUSCLE SPASTICITY
     Route: 065
     Dates: start: 2009, end: 20140817
  75. BACLOFEN. [Concomitant]
     Active Substance: BACLOFEN
     Route: 065
     Dates: start: 201410, end: 20160209
  76. BACLOFEN. [Concomitant]
     Active Substance: BACLOFEN
     Route: 065
     Dates: start: 20181025
  77. GABAPENTIN. [Concomitant]
     Active Substance: GABAPENTIN
     Indication: PAIN
     Route: 065
     Dates: start: 2011, end: 201410
  78. GABAPENTIN. [Concomitant]
     Active Substance: GABAPENTIN
     Indication: PAIN
     Route: 065
     Dates: start: 201410, end: 201601
  79. HYDROCORTISONE VALERATE. [Concomitant]
     Active Substance: HYDROCORTISONE VALERATE
     Indication: ECZEMA
     Dosage: 1 APPLICATION
     Route: 061
     Dates: start: 20121226, end: 201410
  80. VITAMIN D2 [Concomitant]
     Active Substance: ERGOCALCIFEROL
     Indication: MULTIPLE SCLEROSIS
     Route: 065
     Dates: start: 20140127, end: 201507
  81. ZOFRAN [Concomitant]
     Active Substance: ONDANSETRON HYDROCHLORIDE
     Indication: NAUSEA
     Route: 065
     Dates: start: 20131121, end: 20131214
  82. DIPHENHYDRAMINE. [Concomitant]
     Active Substance: DIPHENHYDRAMINE
     Route: 065
     Dates: start: 20121227
  83. DIPHENHYDRAMINE. [Concomitant]
     Active Substance: DIPHENHYDRAMINE
     Dosage: 23/MAR/2016, 24/AUG/2016, 16/FEB/2017, 08/FEB/2018, 08/MAR/2016,19/JUL/2018
     Route: 065
  84. GLYCOPYRROLATE [GLYCOPYRRONIUM] [Concomitant]
     Active Substance: GLYCOPYRRONIUM
     Route: 065
     Dates: start: 20160129, end: 20160129
  85. LISINOPRIL. [Concomitant]
     Active Substance: LISINOPRIL
     Indication: HYPERTENSION
     Route: 065
     Dates: start: 201611, end: 20171023
  86. METOPROLOL TARTRATE. [Concomitant]
     Active Substance: METOPROLOL TARTRATE
     Indication: SEPTIC SHOCK
     Route: 065
     Dates: start: 201603, end: 20181018
  87. METOPROLOL TARTRATE. [Concomitant]
     Active Substance: METOPROLOL TARTRATE
     Route: 065
     Dates: start: 20181024
  88. SENOKOT [Concomitant]
     Active Substance: SENNOSIDES
     Dosage: AT BEDTIME
     Route: 048
     Dates: end: 20181020
  89. SODIUM CHLORIDE. [Concomitant]
     Active Substance: SODIUM CHLORIDE
     Indication: NAUSEA
     Route: 065
     Dates: start: 20180605, end: 20180605
  90. VANCOMYCIN [Concomitant]
     Active Substance: VANCOMYCIN
     Route: 065
     Dates: start: 20160130, end: 20160202
  91. VOLTAREN [DICLOFENAC] [Concomitant]
     Active Substance: DICLOFENAC SODIUM
     Indication: PAIN
     Route: 065
     Dates: start: 20151008, end: 20160202
  92. PLACEBO [Suspect]
     Active Substance: UNSPECIFIED INGREDIENT
     Route: 042
     Dates: start: 20130110, end: 20130110
  93. PLACEBO [Suspect]
     Active Substance: UNSPECIFIED INGREDIENT
     Route: 042
     Dates: start: 20131202, end: 20131202
  94. METHYLPREDNISOLONE. [Concomitant]
     Active Substance: METHYLPREDNISOLONE
     Route: 065
     Dates: start: 20131202
  95. TYLENOL [Concomitant]
     Active Substance: ACETAMINOPHEN
     Route: 065
     Dates: start: 20140513
  96. ADVIL [IBUPROFEN] [Concomitant]
     Active Substance: IBUPROFEN
     Indication: PAIN
  97. AMLODIPINE [Concomitant]
     Active Substance: AMLODIPINE BESYLATE
     Indication: HYPERTENSION
     Route: 065
     Dates: start: 2007, end: 20150727
  98. FAMOTIDINE. [Concomitant]
     Active Substance: FAMOTIDINE
     Indication: NAUSEA
     Route: 065
     Dates: start: 20130913
  99. METHADONE [Concomitant]
     Active Substance: METHADONE HYDROCHLORIDE
     Indication: PAIN
  100. MORPHINE [Concomitant]
     Active Substance: MORPHINE
     Indication: PAIN
     Route: 065
     Dates: start: 201602, end: 20181018
  101. MORPHINE [Concomitant]
     Active Substance: MORPHINE
     Route: 065
     Dates: start: 201507, end: 20160129
  102. MORPHINE [Concomitant]
     Active Substance: MORPHINE
     Dosage: AS REQUIRED
     Route: 048
  103. ZOFRAN [Concomitant]
     Active Substance: ONDANSETRON HYDROCHLORIDE
     Route: 065
     Dates: start: 201608
  104. DIPHENHYDRAMINE. [Concomitant]
     Active Substance: DIPHENHYDRAMINE
     Route: 065
     Dates: start: 20130611
  105. MIRALAX [Concomitant]
     Active Substance: POLYETHYLENE GLYCOL 3350
     Route: 065
     Dates: start: 20181023
  106. BACITRACIN ZINC. [Concomitant]
     Active Substance: BACITRACIN ZINC
     Route: 065
     Dates: start: 20141024, end: 201410
  107. HEPARIN [Concomitant]
     Active Substance: HEPARIN SODIUM
     Dosage: 5000 UNIT
     Route: 065
     Dates: start: 20181022, end: 20181024
  108. LASIX [Concomitant]
     Active Substance: FUROSEMIDE
     Indication: OEDEMA PERIPHERAL
     Route: 065
     Dates: start: 201705, end: 20181018
  109. LEVAQUIN [Concomitant]
     Active Substance: LEVOFLOXACIN
     Dosage: PROPHYLAXIS TO BACLOFEN  PUMP PLACEMENT
     Route: 065
     Dates: start: 20160129, end: 20160211
  110. LIDOCAINE. [Concomitant]
     Active Substance: LIDOCAINE
     Dosage: BACLOFEN PUMP TRIAL: 3 CC
     Route: 065
     Dates: start: 20160106, end: 20160106
  111. PEPCID [Concomitant]
     Active Substance: FAMOTIDINE
     Indication: VOMITING
     Route: 065
     Dates: start: 20130913, end: 20130913
  112. PROPOFOL. [Concomitant]
     Active Substance: PROPOFOL
     Dosage: BACLOFEN PUMP PLACEMENT
     Route: 065
     Dates: start: 20160129, end: 20180129
  113. SENNA [Concomitant]
     Active Substance: SENNA LEAF\SENNOSIDES\SENNOSIDES A AND B
     Route: 065
     Dates: start: 201602
  114. VANCOMYCIN [Concomitant]
     Active Substance: VANCOMYCIN
     Indication: PYREXIA
     Route: 065
     Dates: start: 20180606, end: 201806
  115. VITAMIN D3 [Concomitant]
     Active Substance: CHOLECALCIFEROL
     Dosage: 1000 UNIT
     Route: 065
     Dates: start: 201608, end: 201705
  116. VITAMIN D3 [Concomitant]
     Active Substance: CHOLECALCIFEROL
     Route: 065
     Dates: start: 20180502
  117. VITAMIN D3 [Concomitant]
     Active Substance: CHOLECALCIFEROL
     Dosage: 800 UNITS
     Route: 065
     Dates: start: 20160204, end: 20160211
  118. POLYMYXIN B. [Concomitant]
     Active Substance: POLYMYXIN B
     Route: 065
     Dates: start: 20141024, end: 201410
  119. PLACEBO [Suspect]
     Active Substance: UNSPECIFIED INGREDIENT
     Route: 042
     Dates: start: 20130628, end: 20130628
  120. OCRELIZUMAB. [Suspect]
     Active Substance: OCRELIZUMAB
     Indication: PRIMARY PROGRESSIVE MULTIPLE SCLEROSIS
     Dosage: IV OCRELIZUMAB 300 MG, ON DAY 1 AND 15 OF FIRST 24 WEEK CYCLES AND THEN SINGLE INFUSION OF 600 MG FO
     Route: 042
     Dates: start: 20160308
  121. METHYLPREDNISOLONE. [Concomitant]
     Active Substance: METHYLPREDNISOLONE
     Route: 065
     Dates: start: 20130611
  122. METHYLPREDNISOLONE. [Concomitant]
     Active Substance: METHYLPREDNISOLONE
     Route: 065
     Dates: start: 20130628
  123. METHYLPREDNISOLONE. [Concomitant]
     Active Substance: METHYLPREDNISOLONE
     Route: 065
     Dates: start: 20140513
  124. ADVIL [IBUPROFEN] [Concomitant]
     Active Substance: IBUPROFEN
     Indication: MULTIPLE SCLEROSIS
     Route: 065
     Dates: start: 2009, end: 201410
  125. AMBIEN [Concomitant]
     Active Substance: ZOLPIDEM TARTRATE
     Indication: SLEEP APNOEA SYNDROME
     Route: 065
     Dates: start: 20131122, end: 201410
  126. BACLOFEN. [Concomitant]
     Active Substance: BACLOFEN
     Route: 065
     Dates: start: 20160106, end: 20160106
  127. FAMOTIDINE. [Concomitant]
     Active Substance: FAMOTIDINE
     Route: 065
     Dates: start: 20160304, end: 20181018
  128. HYDROCHLOROTHIAZIDE. [Concomitant]
     Active Substance: HYDROCHLOROTHIAZIDE
     Indication: HYPERTENSION
     Dosage: HYPERTENSION
     Route: 065
     Dates: start: 2007
  129. MORPHINE [Concomitant]
     Active Substance: MORPHINE
     Route: 065
     Dates: start: 201507, end: 20160207
  130. NABUMETONE. [Concomitant]
     Active Substance: NABUMETONE
     Indication: PAIN
     Route: 065
     Dates: start: 20121226, end: 201410
  131. DIPHENHYDRAMINE. [Concomitant]
     Active Substance: DIPHENHYDRAMINE
     Route: 065
     Dates: start: 20140513
  132. MIRALAX [Concomitant]
     Active Substance: POLYETHYLENE GLYCOL 3350
     Indication: CONSTIPATION PROPHYLAXIS
     Route: 065
     Dates: start: 20131213, end: 20140227
  133. CYMBALTA [Concomitant]
     Active Substance: DULOXETINE HYDROCHLORIDE
     Indication: DECUBITUS ULCER
     Route: 048
     Dates: start: 201608
  134. ENULOSE [Concomitant]
     Active Substance: LACTULOSE
     Indication: CONSTIPATION
     Route: 065
     Dates: start: 201603, end: 201605
  135. HEPARIN [Concomitant]
     Active Substance: HEPARIN SODIUM
     Indication: PROPHYLAXIS
     Dosage: INDICATION: COAGULATION PROPHYLAXIS
     Route: 065
     Dates: start: 201311, end: 201311
  136. LISINOPRIL. [Concomitant]
     Active Substance: LISINOPRIL
     Route: 065
     Dates: start: 20181023, end: 20181023
  137. METOPROLOL TARTRATE. [Concomitant]
     Active Substance: METOPROLOL TARTRATE
     Indication: HYPERTENSION
     Route: 065
     Dates: start: 201510, end: 201603
  138. ANTACIDS, OTHER COMBINATIONS [Concomitant]
     Active Substance: ANTACIDS NOS
     Indication: NAUSEA
     Dosage: INDICATION: INTERMITTENT NAUSEA
     Route: 065
     Dates: start: 20130913, end: 20130913
  139. AQUAPHOR [MINERAL WAX;PARAFFIN, LIQUID;PETROLATUM;WOOL ALCOHOLS] [Concomitant]
     Route: 065
     Dates: start: 20141016
  140. SODIUM CHLORIDE. [Concomitant]
     Active Substance: SODIUM CHLORIDE
     Indication: PNEUMONIA
     Route: 065
     Dates: start: 20140929, end: 20141004
  141. VANCOMYCIN [Concomitant]
     Active Substance: VANCOMYCIN
     Route: 065
     Dates: start: 20160129, end: 20160202
  142. XYLOCAINE [Concomitant]
     Active Substance: LIDOCAINE HYDROCHLORIDE
     Indication: NAUSEA
     Route: 065
     Dates: start: 20160304, end: 20160304
  143. ZYVOX [Concomitant]
     Active Substance: LINEZOLID
     Indication: BACTERIAL INFECTION
     Route: 065
     Dates: start: 201705, end: 201705
  144. NAPROXEN. [Concomitant]
     Active Substance: NAPROXEN
     Route: 065
     Dates: start: 20140102, end: 20140728
  145. PLACEBO [Suspect]
     Active Substance: UNSPECIFIED INGREDIENT
     Route: 042
     Dates: start: 20130611, end: 20130611
  146. METHYLPREDNISOLONE. [Concomitant]
     Active Substance: METHYLPREDNISOLONE
     Route: 065
     Dates: start: 20140527
  147. TYLENOL [Concomitant]
     Active Substance: ACETAMINOPHEN
     Dosage: 23/MAR/2016, 24/AUG/2016, 16/FEB/2017, 08/FEB/2018, 08/MAR/2016,19/JUL/2018
     Route: 065
  148. ASPIRIN [ACETYLSALICYLIC ACID] [Concomitant]
     Active Substance: ASPIRIN
     Route: 065
     Dates: start: 20131213, end: 20140814
  149. ASPIRIN [ACETYLSALICYLIC ACID] [Concomitant]
     Active Substance: ASPIRIN
     Route: 065
     Dates: start: 201603, end: 20181018
  150. METHADONE [Concomitant]
     Active Substance: METHADONE HYDROCHLORIDE
     Indication: MULTIPLE SCLEROSIS
     Route: 065
     Dates: start: 20140529, end: 201507
  151. MORPHINE [Concomitant]
     Active Substance: MORPHINE
     Indication: MULTIPLE SCLEROSIS
     Route: 065
     Dates: start: 20130913, end: 20130913
  152. MORPHINE [Concomitant]
     Active Substance: MORPHINE
     Route: 065
     Dates: start: 201602, end: 20181018
  153. DIPHENHYDRAMINE. [Concomitant]
     Active Substance: DIPHENHYDRAMINE
     Route: 065
     Dates: start: 20131202
  154. DIPHENHYDRAMINE. [Concomitant]
     Active Substance: DIPHENHYDRAMINE
     Route: 065
     Dates: start: 20140527
  155. MIRALAX [Concomitant]
     Active Substance: POLYETHYLENE GLYCOL 3350
     Route: 065
     Dates: start: 201605, end: 20181018
  156. BENADRYL [Concomitant]
     Active Substance: DIPHENHYDRAMINE HYDROCHLORIDE
     Route: 065
     Dates: start: 20170824
  157. BISACODYL. [Concomitant]
     Active Substance: BISACODYL
     Indication: CONSTIPATION
     Route: 065
     Dates: start: 20141016, end: 201507
  158. COLACE [Concomitant]
     Active Substance: DOCUSATE SODIUM
     Indication: CONSTIPATION PROPHYLAXIS
     Dosage: INDICATION: CONSTIPATION PROPHYLAXIS
     Route: 065
     Dates: start: 20131213, end: 20140227
  159. COLACE [Concomitant]
     Active Substance: DOCUSATE SODIUM
     Route: 065
     Dates: start: 20140930, end: 20141016
  160. COLACE [Concomitant]
     Active Substance: DOCUSATE SODIUM
     Route: 065
     Dates: start: 201507, end: 20160120
  161. DAKINS FULL [Concomitant]
     Active Substance: SODIUM HYPOCHLORITE
     Indication: DECUBITUS ULCER
     Route: 065
     Dates: start: 20150408, end: 201601
  162. DAKINS FULL [Concomitant]
     Active Substance: SODIUM HYPOCHLORITE
     Route: 065
     Dates: start: 20161121, end: 201708
  163. DEXTRAN 70;HYPROMELLOSE [Concomitant]
     Indication: DRY EYE
     Dosage: 1 DROP
     Route: 065
     Dates: start: 20141016, end: 201410
  164. PLASMALYTE [Concomitant]
     Active Substance: ELECTROLYTES NOS
     Dosage: PROPHYLAXIS TO BACLOFEN PUMP PLACEMENT
     Route: 065
     Dates: start: 20160129, end: 20160211
  165. LISINOPRIL. [Concomitant]
     Active Substance: LISINOPRIL
     Route: 065
     Dates: start: 20171024, end: 20181018
  166. LOSARTAN. [Concomitant]
     Active Substance: LOSARTAN
     Indication: HYPERTENSION
     Route: 065
     Dates: start: 2007, end: 20150727
  167. METOPROLOL TARTRATE. [Concomitant]
     Active Substance: METOPROLOL TARTRATE
     Route: 065
     Dates: start: 20181025
  168. ANTACIDS, OTHER COMBINATIONS [Concomitant]
     Active Substance: ANTACIDS NOS
     Indication: VOMITING
     Route: 065
     Dates: start: 20160304, end: 20181018
  169. SILVER NITRATE. [Concomitant]
     Active Substance: SILVER NITRATE
     Indication: DECUBITUS ULCER
     Route: 061
     Dates: start: 20161021, end: 20161021
  170. VANCOCIN [Concomitant]
     Active Substance: VANCOMYCIN HYDROCHLORIDE
     Dosage: PROPHYLAXIS TO BACLOFEN PUMP PLACEMENT
     Route: 065
     Dates: start: 20160129, end: 20160211
  171. INFLUENZA VACCINE [Concomitant]
     Active Substance: INFLUENZA VIRUS VACCINE
     Route: 065
     Dates: start: 20181022, end: 20181022
  172. PLACEBO [Suspect]
     Active Substance: UNSPECIFIED INGREDIENT
     Route: 042
     Dates: start: 20131216, end: 20131216
  173. ACETAMINOPHEN. [Concomitant]
     Active Substance: ACETAMINOPHEN
     Indication: MULTIPLE SCLEROSIS
     Dosage: INDICATION: MS PAIN
     Route: 065
     Dates: start: 20130629, end: 201410
  174. ACETAMINOPHEN. [Concomitant]
     Active Substance: ACETAMINOPHEN
     Indication: PYREXIA
     Dosage: PROPHYLAXIS TO BACLOFEN PUMP PLACEMENT
     Route: 065
     Dates: start: 20160201, end: 20160201
  175. TYLENOL [Concomitant]
     Active Substance: ACETAMINOPHEN
     Dosage: AS NEEDED
     Route: 048
  176. AMLODIPINE [Concomitant]
     Active Substance: AMLODIPINE BESYLATE
     Route: 065
     Dates: start: 201712, end: 20181018
  177. AMPYRA [Concomitant]
     Active Substance: DALFAMPRIDINE
     Indication: MULTIPLE SCLEROSIS
     Route: 065
     Dates: start: 201202, end: 20131116
  178. GABAPENTIN. [Concomitant]
     Active Substance: GABAPENTIN
     Route: 065
     Dates: start: 20160131, end: 20160202
  179. GABAPENTIN. [Concomitant]
     Active Substance: GABAPENTIN
     Route: 065
     Dates: start: 20181020, end: 20181025
  180. MORPHINE [Concomitant]
     Active Substance: MORPHINE
     Route: 065
     Dates: start: 20160208, end: 20160211
  181. MORPHINE [Concomitant]
     Active Substance: MORPHINE
     Route: 065
     Dates: start: 20161021, end: 20161021
  182. OMEPRAZOLE. [Concomitant]
     Active Substance: OMEPRAZOLE
     Indication: GASTROOESOPHAGEAL REFLUX DISEASE
     Route: 065
     Dates: start: 20141016, end: 201507
  183. DIPHENHYDRAMINE. [Concomitant]
     Active Substance: DIPHENHYDRAMINE
     Route: 065
     Dates: start: 20131216
  184. DIPHENHYDRAMINE. [Concomitant]
     Active Substance: DIPHENHYDRAMINE
     Route: 065
     Dates: start: 20130628
  185. CEFUROXIME. [Concomitant]
     Active Substance: CEFUROXIME
     Route: 065
     Dates: start: 20160129, end: 20160129
  186. CIPRO [Concomitant]
     Active Substance: CIPROFLOXACIN HYDROCHLORIDE
     Indication: PYREXIA
     Route: 065
     Dates: start: 201611, end: 201611
  187. FENTANYL. [Concomitant]
     Active Substance: FENTANYL
     Dosage: PROPHYLAXIS TO BACLOFEN PUMP PLACEMENT
     Route: 065
     Dates: start: 20160129, end: 20160211
  188. LASIX [Concomitant]
     Active Substance: FUROSEMIDE
     Route: 065
     Dates: start: 20181024
  189. LISINOPRIL. [Concomitant]
     Active Substance: LISINOPRIL
     Route: 065
     Dates: start: 20181025
  190. METOPROLOL TARTRATE. [Concomitant]
     Active Substance: METOPROLOL TARTRATE
     Route: 065
     Dates: start: 201603
  191. ANTACIDS, OTHER COMBINATIONS [Concomitant]
     Active Substance: ANTACIDS NOS
     Indication: ILEUS
     Route: 065
     Dates: start: 20141005, end: 20141016
  192. ONDANSETRON [Concomitant]
     Active Substance: ONDANSETRON
     Dosage: BACLOFEN PUMP PLACEMENT
     Route: 065
     Dates: start: 20160129, end: 20160129
  193. SENOKOT [Concomitant]
     Active Substance: SENNOSIDES
     Indication: CONSTIPATION
     Route: 065
     Dates: start: 20160129, end: 20160211
  194. SODIUM CHLORIDE. [Concomitant]
     Active Substance: SODIUM CHLORIDE
     Indication: VOMITING
     Route: 065
     Dates: start: 20160303, end: 20160303
  195. LEVOPHED [Concomitant]
     Active Substance: NOREPINEPHRINE BITARTRATE
     Dosage: IN NS 250ML (0.?30 MCG/MINUTE)
     Route: 042
     Dates: end: 20181020

REACTIONS (5)
  - Ileus [Recovered/Resolved with Sequelae]
  - Septic shock [Recovered/Resolved]
  - Pneumonia [Recovered/Resolved]
  - Pneumonia [Recovered/Resolved]
  - Septic shock [Recovered/Resolved]

NARRATIVE: CASE EVENT DATE: 20140929
